FAERS Safety Report 25983333 (Version 1)
Quarter: 2025Q4

REPORT INFORMATION
  Report Type: Spontaneous
  Country: US (occurrence: US)
  Receive Date: 20251031
  Receipt Date: 20251031
  Transmission Date: 20260117
  Serious: No
  Sender: FDC LIMITED
  Company Number: US-FDC-2025USSPO00390

PATIENT

DRUGS (1)
  1. CIPROFLOXACIN [Suspect]
     Active Substance: CIPROFLOXACIN
     Indication: Product used for unknown indication
     Route: 065

REACTIONS (3)
  - Ocular discomfort [Unknown]
  - Foreign body sensation in eyes [Unknown]
  - Product label issue [Unknown]
